FAERS Safety Report 6117143-7 (Version None)
Quarter: 2009Q1

REPORT INFORMATION
  Report Type: 
  Country: None (occurrence: None)
  Receive Date: 20090314
  Receipt Date: 20090107
  Transmission Date: 20090719
  Serious: No
  Sender: FDA-Public Use
  Company Number: US-ABBOTT-09P-163-0496497-00

PATIENT
  Sex: Female
  Weight: 88.53 kg

DRUGS (2)
  1. HUMIRA [Suspect]
     Indication: SWEAT GLAND INFECTION
     Dates: start: 20090103, end: 20090103
  2. HUMIRA [Suspect]

REACTIONS (12)
  - CHEST DISCOMFORT [None]
  - DYSPNOEA [None]
  - FATIGUE [None]
  - HEADACHE [None]
  - INCORRECT DOSE ADMINISTERED [None]
  - INJECTION SITE PAIN [None]
  - LACRIMATION INCREASED [None]
  - NASOPHARYNGITIS [None]
  - NIGHT SWEATS [None]
  - OVERDOSE [None]
  - RESPIRATORY TRACT CONGESTION [None]
  - SINUS HEADACHE [None]
